FAERS Safety Report 6742858-7 (Version None)
Quarter: 2010Q2

REPORT INFORMATION
  Report Type: 
  Country: None (occurrence: None)
  Receive Date: 20100525
  Receipt Date: 20100511
  Transmission Date: 20101027
  Serious: Yes (Other)
  Sender: FDA-Public Use
  Company Number: 2010AP000991

PATIENT
  Age: 19 Month
  Sex: Male

DRUGS (2)
  1. ALBUTEROL SULFATE [Suspect]
     Indication: BREATH SOUNDS
  2. ALBUTEROL SULFATE [Suspect]
     Indication: TACHYPNOEA

REACTIONS (4)
  - BLOOD BICARBONATE DECREASED [None]
  - DRUG INEFFECTIVE FOR UNAPPROVED INDICATION [None]
  - OFF LABEL USE [None]
  - RESPIRATORY DISTRESS [None]
